FAERS Safety Report 6702122-9 (Version None)
Quarter: 2010Q2

REPORT INFORMATION
  Report Type: 
  Country: None (occurrence: None)
  Receive Date: 20100429
  Receipt Date: 20100427
  Transmission Date: 20101027
  Serious: Yes (Life-Threatening, Hospitalization)
  Sender: FDA-Public Use
  Company Number: JP-SANOFI-AVENTIS-2009SA001005

PATIENT
  Sex: Male

DRUGS (10)
  1. OXALIPLATIN [Suspect]
     Indication: COLON CANCER
     Route: 041
     Dates: start: 20090713, end: 20090713
  2. OXALIPLATIN [Suspect]
     Route: 041
     Dates: start: 20091104, end: 20091104
  3. CALCIUM LEVOFOLINATE [Suspect]
     Indication: COLON CANCER
     Route: 041
     Dates: start: 20090713, end: 20090713
  4. CALCIUM LEVOFOLINATE [Suspect]
     Route: 041
     Dates: start: 20091104, end: 20091104
  5. BEVACIZUMAB [Suspect]
     Indication: COLON CANCER
     Route: 041
     Dates: start: 20090713, end: 20090713
  6. BEVACIZUMAB [Suspect]
     Route: 041
     Dates: start: 20091104, end: 20091104
  7. FLUOROURACIL [Concomitant]
     Indication: COLON CANCER
     Route: 040
     Dates: start: 20090713, end: 20090713
  8. FLUOROURACIL [Concomitant]
     Route: 041
     Dates: start: 20090713, end: 20090714
  9. FLUOROURACIL [Concomitant]
     Route: 040
  10. FLUOROURACIL [Concomitant]
     Route: 041

REACTIONS (1)
  - ANAPHYLACTIC SHOCK [None]
